FAERS Safety Report 11924066 (Version 1)
Quarter: 2016Q1

REPORT INFORMATION
  Report Type: Spontaneous
  Country: AU (occurrence: AU)
  Receive Date: 20160118
  Receipt Date: 20160118
  Transmission Date: 20160526
  Serious: Yes (Hospitalization)
  Sender: FDA-Public Use
  Company Number: AU-PERRIGO-16AU000142

PATIENT
  Sex: Female

DRUGS (1)
  1. ACETAMINOPHEN 650MG ER 544 [Suspect]
     Active Substance: ACETAMINOPHEN
     Indication: PRODUCT USED FOR UNKNOWN INDICATION
     Dosage: TOTAL OF 9.31 G (14 X 655 MG MODIFIED RELEASE OVER 2.5 HOURS)
     Route: 048

REACTIONS (2)
  - Overdose [Unknown]
  - Toxicity to various agents [Unknown]
